FAERS Safety Report 6492544-6 (Version None)
Quarter: 2009Q4

REPORT INFORMATION
  Report Type: 
  Country: None (occurrence: None)
  Receive Date: 20091208
  Receipt Date: 20091124
  Transmission Date: 20100525
  Serious: Yes (Life-Threatening, Hospitalization)
  Sender: FDA-Public Use
  Company Number: PAR_03264_2009

PATIENT
  Age: 8 Year
  Sex: Male

DRUGS (2)
  1. RISPERIDONE [Suspect]
     Indication: AGITATION
     Dosage: (2.5 MG)
  2. RISPERIDONE [Suspect]
     Indication: SLEEP DISORDER
     Dosage: (2.5 MG)

REACTIONS (9)
  - ARRHYTHMIA [None]
  - HEADACHE [None]
  - HEART RATE IRREGULAR [None]
  - LOSS OF CONSCIOUSNESS [None]
  - NAUSEA [None]
  - REFUSAL OF TREATMENT BY RELATIVE [None]
  - SINUS ARREST [None]
  - SINUS BRADYCARDIA [None]
  - VOMITING [None]
